FAERS Safety Report 15806254 (Version 8)
Quarter: 2023Q1

REPORT INFORMATION
  Report Type: Spontaneous
  Country: US (occurrence: US)
  Receive Date: 20190110
  Receipt Date: 20230307
  Transmission Date: 20230418
  Serious: No
  Sender: FDA-Public Use
  Company Number: US-PFIZER INC-2017401753

PATIENT
  Age: 25 Year
  Sex: Female

DRUGS (5)
  1. SOMAVERT [Suspect]
     Active Substance: PEGVISOMANT
     Indication: Acromegaly
     Dosage: 60 MG, DAILY
     Route: 058
     Dates: start: 20150101
  2. SOMAVERT [Suspect]
     Active Substance: PEGVISOMANT
     Dosage: 30 MG (30 MG X 6 DAYS/WK)
     Dates: start: 201510
  3. SOMAVERT [Suspect]
     Active Substance: PEGVISOMANT
     Dosage: 60 MG, DAILY
     Dates: start: 20151108
  4. SOMAVERT [Suspect]
     Active Substance: PEGVISOMANT
     Dosage: 60 MG, DAILY
     Dates: start: 20201101
  5. SOMATULINE DEPOT [Concomitant]
     Active Substance: LANREOTIDE ACETATE
     Dosage: UNK

REACTIONS (8)
  - Off label use [Unknown]
  - Intentional dose omission [Unknown]
  - Product dose omission issue [Unknown]
  - Prescribed overdose [Unknown]
  - Glycosylated haemoglobin increased [Unknown]
  - Blood thyroid stimulating hormone decreased [Unknown]
  - Tri-iodothyronine decreased [Unknown]
  - Insulin-like growth factor increased [Unknown]

NARRATIVE: CASE EVENT DATE: 20150101
